FAERS Safety Report 5519810-2 (Version None)
Quarter: 2007Q4

REPORT INFORMATION
  Report Type: 
  Country: None (occurrence: None)
  Receive Date: 20071116
  Receipt Date: 20070828
  Transmission Date: 20080405
  Serious: No
  Sender: FDA-Public Use
  Company Number: A0676981A

PATIENT
  Age: 79 Year
  Sex: Female

DRUGS (9)
  1. COREG CR [Suspect]
     Dosage: 10MG PER DAY
     Route: 048
     Dates: start: 20070813, end: 20070820
  2. LASIX [Concomitant]
  3. POTASSIUM CHLORIDE [Concomitant]
  4. AMIODARONE [Concomitant]
  5. SYNTHROID [Concomitant]
  6. PROTONIX [Concomitant]
  7. COUMADIN [Concomitant]
  8. LIPITOR [Concomitant]
  9. XANAX [Concomitant]

REACTIONS (1)
  - DIZZINESS [None]
